FAERS Safety Report 15827166 (Version 1)
Quarter: 2019Q1

REPORT INFORMATION
  Report Type: Spontaneous
  Country: DE (occurrence: DE)
  Receive Date: 20190115
  Receipt Date: 20190115
  Transmission Date: 20190417
  Serious: Yes (Other)
  Sender: FDA-Public Use
  Company Number: PHHY2019DE003089

PATIENT
  Sex: Female

DRUGS (1)
  1. INTERFERON BETA-1B [Suspect]
     Active Substance: INTERFERON BETA-1B
     Indication: MULTIPLE SCLEROSIS
     Dosage: 250 UG, QOD
     Route: 058
     Dates: start: 20050301

REACTIONS (11)
  - Musculoskeletal stiffness [Recovering/Resolving]
  - Musculoskeletal discomfort [Recovering/Resolving]
  - Multiple sclerosis [Not Recovered/Not Resolved]
  - Back pain [Recovering/Resolving]
  - Paraesthesia [Recovering/Resolving]
  - Hypersensitivity [Recovering/Resolving]
  - Multiple sclerosis relapse [Recovering/Resolving]
  - Mobility decreased [Recovering/Resolving]
  - Coordination abnormal [Recovering/Resolving]
  - Multiple sclerosis relapse [Recovering/Resolving]
  - Hyperaesthesia [Recovering/Resolving]

NARRATIVE: CASE EVENT DATE: 20160711
